FAERS Safety Report 13376411 (Version 1)
Quarter: 2017Q1

REPORT INFORMATION
  Report Type: Spontaneous
  Country: US (occurrence: US)
  Receive Date: 20170328
  Receipt Date: 20170328
  Transmission Date: 20170429
  Serious: No
  Sender: FDA-Public Use
  Company Number: US-PFIZER INC-2017132078

PATIENT
  Age: 32 Year
  Sex: Female
  Weight: 64.5 kg

DRUGS (8)
  1. SYNTHROID [Concomitant]
     Active Substance: LEVOTHYROXINE SODIUM
     Indication: PRIMARY HYPOTHYROIDISM
     Dosage: 88 UG, DAILY
     Route: 048
  2. GENOTROPIN MQ [Suspect]
     Active Substance: SOMATROPIN
     Indication: GROWTH HORMONE DEFICIENCY
     Dosage: 0.6 MG, DAILY (7 DAYS/WEEK )
     Route: 058
     Dates: start: 201503
  3. ONE-A-DAY /00156401/ [Concomitant]
     Active Substance: UNSPECIFIED INGREDIENT
     Dosage: 1 DF, 1X/DAY
     Route: 048
  4. VITAMIN D2 [Concomitant]
     Active Substance: ERGOCALCIFEROL
     Dosage: UNK UNK, DAILY
     Route: 048
  5. GENOTROPIN MQ [Suspect]
     Active Substance: SOMATROPIN
     Indication: HYPOPITUITARISM
  6. DOSTINEX [Concomitant]
     Active Substance: CABERGOLINE
     Indication: BLOOD PROLACTIN ABNORMAL
     Dosage: 0.5 MG, 2X/WEEK
     Route: 048
  7. IMITREX [Concomitant]
     Active Substance: SUMATRIPTAN SUCCINATE
     Indication: HEADACHE
     Dosage: 50 MG, AS NEEDED (NOT TO EXCEED 200MG PER 24 HOURS)
     Route: 048
  8. XANAX [Concomitant]
     Active Substance: ALPRAZOLAM
     Dosage: 0.5 MG, AS NEEDED
     Route: 048

REACTIONS (3)
  - Hangover [Unknown]
  - Malaise [Recovered/Resolved]
  - Fatigue [Unknown]

NARRATIVE: CASE EVENT DATE: 2015
